FAERS Safety Report 24926987 (Version 1)
Quarter: 2025Q1

REPORT INFORMATION
  Report Type: Report from Study
  Country: US (occurrence: US)
  Receive Date: 20250205
  Receipt Date: 20250205
  Transmission Date: 20250408
  Serious: Yes (Hospitalization, Other)
  Sender: ALEXION PHARMACEUTICALS
  Company Number: US-ASTRAZENECA-202501USA027751US

PATIENT

DRUGS (1)
  1. STRENSIQ [Suspect]
     Active Substance: ASFOTASE ALFA
     Route: 065

REACTIONS (10)
  - Urinary tract infection [Unknown]
  - Systemic lupus erythematosus [Unknown]
  - Addison^s disease [Unknown]
  - Illness [Unknown]
  - Viral infection [Unknown]
  - Bacterial infection [Unknown]
  - Stress [Unknown]
  - Weight decreased [Unknown]
  - Fatigue [Unknown]
  - Blood creatine phosphokinase increased [Unknown]
